FAERS Safety Report 7283111-5 (Version None)
Quarter: 2011Q1

REPORT INFORMATION
  Report Type: 
  Country: None (occurrence: None)
  Receive Date: 20110209
  Receipt Date: 20100708
  Transmission Date: 20110831
  Serious: No
  Sender: FDA-Public Use
  Company Number: A0866925A

PATIENT
  Age: 70 Year
  Sex: Female

DRUGS (7)
  1. PAXIL [Suspect]
     Indication: DEPRESSION
     Dosage: 25MG PER DAY
     Route: 048
     Dates: start: 20080101
  2. NEURONTIN [Concomitant]
  3. CELEBREX [Concomitant]
  4. ACTOS [Concomitant]
  5. LIPITOR [Concomitant]
  6. LIBRAX [Concomitant]
  7. GLUCOTROL [Concomitant]

REACTIONS (3)
  - ILL-DEFINED DISORDER [None]
  - KIDNEY INFECTION [None]
  - BACK PAIN [None]
